FAERS Safety Report 9716266 (Version 1)
Quarter: 2013Q4

REPORT INFORMATION
  Report Type: Spontaneous
  Country: US (occurrence: None)
  Receive Date: 20131126
  Receipt Date: 20131126
  Transmission Date: 20140711
  Serious: No
  Sender: FDA-Public Use
  Company Number: None

PATIENT
  Age: 69 Year
  Sex: Male
  Weight: 86.2 kg

DRUGS (2)
  1. ENOXAPARIN [Suspect]
     Indication: CEREBROVASCULAR ACCIDENT PROPHYLAXIS
     Dosage: 40MG EVERY DAY, SQ
     Route: 058
     Dates: start: 20131011, end: 20131012
  2. ASPIRIN [Suspect]
     Indication: THROMBOSIS PROPHYLAXIS
     Route: 048
     Dates: start: 20101129, end: 20131011

REACTIONS (6)
  - Haemoglobin decreased [None]
  - Haematemesis [None]
  - Faeces discoloured [None]
  - Syncope [None]
  - Orthostatic intolerance [None]
  - Gastrointestinal haemorrhage [None]
